FAERS Safety Report 8504292-9 (Version None)
Quarter: 2012Q3

REPORT INFORMATION
  Report Type: 
  Country: None (occurrence: None)
  Receive Date: 20120711
  Receipt Date: 20120709
  Transmission Date: 20120928
  Serious: Yes (Hospitalization, Congenital Anomaly, Other)
  Sender: FDA-Public Use
  Company Number: GXKR2012DE002170

PATIENT

DRUGS (1)
  1. PAROXETINE [Suspect]
     Dosage: MATERNAL DOSE: 20 [MG/D ]/ EVERY SECOND DAY
     Route: 064

REACTIONS (5)
  - SMALL FOR DATES BABY [None]
  - BRADYCARDIA NEONATAL [None]
  - HYPERBILIRUBINAEMIA NEONATAL [None]
  - ATRIAL SEPTAL DEFECT [None]
  - FOETAL EXPOSURE DURING PREGNANCY [None]
